FAERS Safety Report 25793485 (Version 2)
Quarter: 2025Q4

REPORT INFORMATION
  Report Type: Spontaneous
  Country: US (occurrence: US)
  Receive Date: 20250911
  Receipt Date: 20251014
  Transmission Date: 20260118
  Serious: Yes (Hospitalization)
  Sender: BIOGEN
  Company Number: US-BIOGEN-2025BI01323472

PATIENT
  Age: 30 Year
  Sex: Female

DRUGS (3)
  1. TYSABRI [Suspect]
     Active Substance: NATALIZUMAB
     Indication: Multiple sclerosis
     Route: 050
  2. TYSABRI [Suspect]
     Active Substance: NATALIZUMAB
     Route: 050
  3. TYSABRI [Suspect]
     Active Substance: NATALIZUMAB
     Route: 050
     Dates: start: 20220628

REACTIONS (5)
  - Multiple sclerosis relapse [Unknown]
  - Prescribed underdose [Recovered/Resolved]
  - COVID-19 [Recovered/Resolved]
  - Stress [Unknown]
  - Multiple sclerosis pseudo relapse [Unknown]

NARRATIVE: CASE EVENT DATE: 20250813
